FAERS Safety Report 15978869 (Version 1)
Quarter: 2019Q1

REPORT INFORMATION
  Report Type: Spontaneous
  Country: DK (occurrence: DK)
  Receive Date: 20190219
  Receipt Date: 20190219
  Transmission Date: 20190418
  Serious: Yes (Death)
  Sender: FDA-Public Use
  Company Number: DK-TEVA-2019-DK-1012466

PATIENT
  Age: 41 Year
  Sex: Male

DRUGS (3)
  1. QUETIAPIN ^ACTAVIS^ [Suspect]
     Active Substance: QUETIAPINE FUMARATE
     Indication: MENTAL DISORDER
     Dosage: 75 MILLIGRAM DAILY;
     Route: 048
     Dates: start: 20180927
  2. PARACETAMOL [Concomitant]
     Active Substance: ACETAMINOPHEN
     Indication: PRODUCT USED FOR UNKNOWN INDICATION
     Dosage: STRENGTH: UNKNOWN
  3. SERTRALINE [Suspect]
     Active Substance: SERTRALINE HYDROCHLORIDE
     Indication: DEPRESSION
     Dosage: 50 MILLIGRAM DAILY;
     Route: 048
     Dates: start: 20180927

REACTIONS (3)
  - Arrhythmia [Fatal]
  - Sudden death [Fatal]
  - Electrocardiogram QT prolonged [Fatal]

NARRATIVE: CASE EVENT DATE: 20181005
